FAERS Safety Report 4637438-3 (Version None)
Quarter: 2005Q2

REPORT INFORMATION
  Report Type: 
  Country: None (occurrence: None)
  Receive Date: 20050418
  Receipt Date: 20050317
  Transmission Date: 20051028
  Serious: Yes (Hospitalization)
  Sender: FDA-Public Use
  Company Number: 200510963FR

PATIENT
  Age: 94 Year
  Sex: Male
  Weight: 55 kg

DRUGS (10)
  1. KETEK [Suspect]
     Indication: PNEUMONIA
     Route: 048
     Dates: start: 20041207, end: 20041212
  2. SINEMET [Concomitant]
     Indication: PARKINSON'S DISEASE
     Route: 048
  3. CLAMOXYL [Concomitant]
     Route: 048
     Dates: start: 20041204, end: 20041207
  4. BRICANYL [Concomitant]
     Route: 048
     Dates: start: 20041204, end: 20041206
  5. AMLOR [Concomitant]
     Route: 048
  6. LEPTICUR [Concomitant]
     Route: 048
  7. LASILIX [Concomitant]
  8. KARDEGIC [Concomitant]
  9. SERETIDE [Concomitant]
  10. XATRAL [Concomitant]

REACTIONS (7)
  - GENERAL PHYSICAL HEALTH DETERIORATION [None]
  - INFLAMMATION [None]
  - LARYNGEAL DYSPNOEA [None]
  - RALES [None]
  - SUBILEUS [None]
  - TREMOR [None]
  - URINARY RETENTION [None]
